FAERS Safety Report 4984099-X (Version None)
Quarter: 2006Q1

REPORT INFORMATION
  Report Type: 
  Country: None (occurrence: None)
  Receive Date: 20060302
  Receipt Date: 20051103
  Transmission Date: 20060701
  Serious: Yes (Hospitalization)
  Sender: FDA-Public Use
  Company Number: 1997

PATIENT
  Sex: Male

DRUGS (2)
  1. TARGRETIN [Suspect]
     Dosage: 525 MG DAILY PO
     Route: 048
     Dates: start: 20050801, end: 20051001
  2. TARGRETIN [Suspect]
     Dosage: 150 MG DAILY PO
     Route: 048
     Dates: start: 20051001

REACTIONS (1)
  - CONFUSIONAL STATE [None]
